FAERS Safety Report 25776449 (Version 1)
Quarter: 2025Q3

REPORT INFORMATION
  Report Type: Spontaneous
  Country: US (occurrence: US)
  Receive Date: 20250909
  Receipt Date: 20250909
  Transmission Date: 20251020
  Serious: No
  Sender: DOMPE FARMACEUTICI
  Company Number: US-FARMAPROD-202503-0679

PATIENT
  Sex: Female

DRUGS (20)
  1. OXERVATE [Suspect]
     Active Substance: CENEGERMIN-BKBJ
     Indication: Neurotrophic keratopathy
     Route: 047
     Dates: start: 20250220
  2. COENZYME Q10 [Concomitant]
     Active Substance: DIETARY SUPPLEMENT\UBIDECARENONE
  3. DRY EYE FORMULA [Concomitant]
  4. VITAMIN D3 [Concomitant]
     Active Substance: CHOLECALCIFEROL
  5. CALCIUM\CHOLECALCIFEROL [Concomitant]
     Active Substance: CALCIUM\CHOLECALCIFEROL
  6. VITAMINS [Concomitant]
     Active Substance: VITAMINS
  7. TYLENOL [Concomitant]
     Active Substance: ACETAMINOPHEN
  8. CLARITIN [Concomitant]
     Active Substance: LORATADINE
  9. IBUPROFEN [Concomitant]
     Active Substance: IBUPROFEN
  10. SIMVASTATIN [Concomitant]
     Active Substance: SIMVASTATIN
  11. OXYBUTYNIN CHLORIDE [Concomitant]
     Active Substance: OXYBUTYNIN CHLORIDE
  12. BENADRYL [Concomitant]
     Active Substance: DIPHENHYDRAMINE HYDROCHLORIDE
  13. ORENCIA [Concomitant]
     Active Substance: ABATACEPT
  14. OMEPRAZOLE [Concomitant]
     Active Substance: OMEPRAZOLE
  15. METHOTREXATE [Concomitant]
     Active Substance: METHOTREXATE
  16. LISINOPRIL AND HYDROCHLOROTHIAZIDE [Concomitant]
     Active Substance: HYDROCHLOROTHIAZIDE\LISINOPRIL
  17. LEFLUNOMIDE [Concomitant]
     Active Substance: LEFLUNOMIDE
  18. HYDROXYCHLOROQUINE SULFATE [Concomitant]
     Active Substance: HYDROXYCHLOROQUINE SULFATE
  19. GABAPENTIN [Concomitant]
     Active Substance: GABAPENTIN
  20. ASPIRIN [Concomitant]
     Active Substance: ASPIRIN

REACTIONS (1)
  - Abnormal sensation in eye [Unknown]
